FAERS Safety Report 12155823 (Version 4)
Quarter: 2016Q1

REPORT INFORMATION
  Report Type: Report from Study
  Country: MX (occurrence: MX)
  Receive Date: 20160307
  Receipt Date: 20160311
  Transmission Date: 20160526
  Serious: Yes (Life-Threatening)
  Sender: FDA-Public Use
  Company Number: MX-UCBSA-2016008301

PATIENT
  Age: 38 Year
  Sex: Female
  Weight: 65 kg

DRUGS (6)
  1. PRIMIDONE. [Concomitant]
     Active Substance: PRIMIDONE
     Indication: EPILEPSY
     Dosage: 250 MG, ONCE DAILY (QD)
     Route: 048
     Dates: start: 20130313
  2. TOPIRAMATO [Concomitant]
     Active Substance: TOPIRAMATE
     Indication: EPILEPSY
     Dosage: UNK UNK, 3X/DAY (TID)
     Route: 048
     Dates: start: 20100928
  3. BRIVARACETAM EP [Suspect]
     Active Substance: BRIVARACETAM
     Indication: EPILEPSY
     Dosage: UNK UNK, 2X/DAY (BID), TOTAL DAILY DOSE: 200 MG
     Route: 048
     Dates: start: 20060309
  4. VALPROIC ACID. [Concomitant]
     Active Substance: VALPROIC ACID
     Indication: EPILEPSY
     Dosage: UNK UNK, 3X/DAY (TID)
     Route: 048
     Dates: start: 20150604
  5. NORGESTREL [Concomitant]
     Active Substance: NORGESTREL
     Indication: CONTRACEPTION
     Dosage: 0.05 MG, ONCE DAILY (QD)
     Route: 048
     Dates: start: 20060207
  6. ESTRADIOL. [Concomitant]
     Active Substance: ESTRADIOL
     Dosage: 0.5 MG, ONCE DAILY (QD)
     Dates: start: 20060207

REACTIONS (1)
  - Neurological infection [Not Recovered/Not Resolved]

NARRATIVE: CASE EVENT DATE: 20160303
